FAERS Safety Report 7049758-6 (Version None)
Quarter: 2010Q4

REPORT INFORMATION
  Report Type: 
  Country: None (occurrence: None)
  Receive Date: 20101018
  Receipt Date: 20101014
  Transmission Date: 20110411
  Serious: Yes (Other)
  Sender: FDA-Public Use
  Company Number: D0069138A

PATIENT

DRUGS (1)
  1. ARIXTRA [Suspect]
     Dosage: 7.5MG SINGLE DOSE
     Route: 065

REACTIONS (2)
  - ACCIDENTAL OVERDOSE [None]
  - HAEMORRHAGE [None]
